FAERS Safety Report 18721028 (Version 1)
Quarter: 2021Q1

REPORT INFORMATION
  Report Type: Spontaneous
  Country: US (occurrence: US)
  Receive Date: 20210109
  Receipt Date: 20210109
  Transmission Date: 20210419
  Serious: No
  Sender: FDA-Public Use
  Company Number: US-ASTRAZENECA-2020SF68506

PATIENT
  Sex: Female

DRUGS (1)
  1. BYDUREON [Suspect]
     Active Substance: EXENATIDE
     Dosage: UNKNOWN DOSE AND FREQUENCY
     Route: 065

REACTIONS (4)
  - Weight decreased [Unknown]
  - Vomiting [Unknown]
  - Depression [Unknown]
  - Asthenia [Unknown]
